FAERS Safety Report 14839586 (Version 5)
Quarter: 2020Q3

REPORT INFORMATION
  Report Type: Report from Study
  Country: DE (occurrence: DE)
  Receive Date: 20180502
  Receipt Date: 20200720
  Transmission Date: 20201102
  Serious: Yes (Hospitalization, Other)
  Sender: FDA-Public Use
  Company Number: PHHY2018DE075429

PATIENT
  Age: 6 Year
  Sex: Male
  Weight: 25.1 kg

DRUGS (2)
  1. OMNITROPE [Suspect]
     Active Substance: SOMATROPIN
     Indication: PRADER-WILLI SYNDROME
     Dosage: 0.036 OT, 5 MG/1.5 ML SOLUTION FOR INJECTION
     Route: 058
     Dates: start: 20120301
  2. OMNITROPE [Suspect]
     Active Substance: SOMATROPIN
     Dosage: 0.6 MG, QD (10 MG/1.5 ML)
     Route: 058
     Dates: start: 201204

REACTIONS (5)
  - Joint dislocation [Recovered/Resolved]
  - Apnoea [Recovered/Resolved]
  - Nasal congestion [Recovered/Resolved]
  - Nasal obstruction [Recovered/Resolved]
  - Obstructive airways disorder [Recovered/Resolved]

NARRATIVE: CASE EVENT DATE: 20170620
